FAERS Safety Report 14953087 (Version 2)
Quarter: 2018Q4

REPORT INFORMATION
  Report Type: Report from Study
  Country: US (occurrence: US)
  Receive Date: 20180530
  Receipt Date: 20181227
  Transmission Date: 20190204
  Serious: Yes (Hospitalization, Other)
  Sender: FDA-Public Use
  Company Number: US-GILEAD-2018-0340260

PATIENT
  Age: 48 Year
  Sex: Female
  Weight: 47.62 kg

DRUGS (22)
  1. DOCUSATE SODIUM. [Concomitant]
     Active Substance: DOCUSATE SODIUM
  2. FERROUS SULFATE. [Concomitant]
     Active Substance: FERROUS SULFATE
  3. CLOBETASOL [Concomitant]
     Active Substance: CLOBETASOL
  4. METFORMIN [Concomitant]
     Active Substance: METFORMIN HYDROCHLORIDE
  5. DESONIDE. [Concomitant]
     Active Substance: DESONIDE
  6. NEOSPORIN [Concomitant]
     Active Substance: BACITRACIN ZINC\NEOMYCIN SULFATE\POLYMYXIN B SULFATE
  7. ACETAMINOPHEN. [Concomitant]
     Active Substance: ACETAMINOPHEN
  8. SOFOSBUVIR W/VELPATASVIR [Suspect]
     Active Substance: SOFOSBUVIR\VELPATASVIR
     Indication: HEPATITIS C
     Dosage: 1 DF, QD
     Route: 048
     Dates: start: 20170721, end: 20171017
  9. LIDOCAINE. [Concomitant]
     Active Substance: LIDOCAINE
  10. LISINOPRIL. [Concomitant]
     Active Substance: LISINOPRIL
  11. POLYETHYLENE GLYCOL [Concomitant]
     Active Substance: POLYETHYLENE GLYCOLS
  12. TRIAMCINOLONE [Concomitant]
     Active Substance: TRIAMCINOLONE
  13. NICOTINE POLACRILEX [Concomitant]
     Active Substance: NICOTINE
  14. GLIPIZIDE. [Concomitant]
     Active Substance: GLIPIZIDE
  15. HYDROXYZINE [Concomitant]
     Active Substance: HYDROXYZINE HYDROCHLORIDE
  16. DICLOFENAC [Concomitant]
     Active Substance: DICLOFENAC
  17. BACLOFEN. [Concomitant]
     Active Substance: BACLOFEN
  18. LACTULOSE. [Concomitant]
     Active Substance: LACTULOSE
  19. DOXEPIN [Concomitant]
     Active Substance: DOXEPIN
  20. FLUOCINONIDE. [Concomitant]
     Active Substance: FLUOCINONIDE
  21. VANICREAM [Concomitant]
     Active Substance: TITANIUM DIOXIDE\ZINC OXIDE
  22. KETOCONAZOLE. [Concomitant]
     Active Substance: KETOCONAZOLE

REACTIONS (2)
  - Sepsis [Recovering/Resolving]
  - Decubitus ulcer [Unknown]

NARRATIVE: CASE EVENT DATE: 20171013
